FAERS Safety Report 23634460 (Version 1)
Quarter: 2024Q1

REPORT INFORMATION
  Report Type: Spontaneous
  Country: GB (occurrence: GB)
  Receive Date: 20240314
  Receipt Date: 20240314
  Transmission Date: 20240409
  Serious: Yes (Other)
  Sender: FDA-Public Use
  Company Number: GB-RUDI-ADR08022401

PATIENT
  Age: 70 Year
  Sex: Male

DRUGS (1)
  1. PERINDOPRIL [Suspect]
     Active Substance: PERINDOPRIL
     Indication: Product used for unknown indication
     Dosage: 4 MILLIGRAM
     Route: 048

REACTIONS (3)
  - Foreign body in throat [Unknown]
  - Dysgeusia [Unknown]
  - Dyspepsia [Unknown]
